FAERS Safety Report 4839192-9 (Version None)
Quarter: 2005Q4

REPORT INFORMATION
  Report Type: 
  Country: None (occurrence: None)
  Receive Date: 20051129
  Receipt Date: 20051118
  Transmission Date: 20060501
  Serious: Yes (Other)
  Sender: FDA-Public Use
  Company Number: US-JNJFOC-20051104799

PATIENT
  Age: 69 Year
  Sex: Male

DRUGS (1)
  1. REMICADE [Suspect]
     Indication: RHEUMATOID ARTHRITIS
     Dosage: RECEIVING FOR 3 YEARS
     Route: 042

REACTIONS (1)
  - PERITONEAL TUBERCULOSIS [None]
